FAERS Safety Report 9961031 (Version 1)
Quarter: 2014Q1

REPORT INFORMATION
  Report Type: Report from Study
  Country: US (occurrence: US)
  Receive Date: 20140305
  Receipt Date: 20140305
  Transmission Date: 20141002
  Serious: No
  Sender: FDA-Public Use
  Company Number: US-ABBVIE-13P-163-1108051-00

PATIENT
  Age: 52 Year
  Sex: Female

DRUGS (4)
  1. HUMIRA [Suspect]
     Indication: PSORIATIC ARTHROPATHY
     Dates: start: 201303
  2. METHOTREXATE [Concomitant]
     Indication: BLOOD PRESSURE
     Dosage: 1 PILL
  3. ANTIDEPRESSANTS [Concomitant]
     Indication: PRODUCT USED FOR UNKNOWN INDICATION
  4. OTC HEARTBURN MEDICINE [Concomitant]
     Indication: DYSPEPSIA

REACTIONS (1)
  - Hepatic enzyme increased [Not Recovered/Not Resolved]
